FAERS Safety Report 7656905-1 (Version None)
Quarter: 2011Q3

REPORT INFORMATION
  Report Type: 
  Country: None (occurrence: None)
  Receive Date: 20110729
  Receipt Date: 20110713
  Transmission Date: 20111222
  Serious: Yes (Death)
  Sender: FDA-Public Use
  Company Number: AMAG201100157

PATIENT
  Age: 63 Year
  Sex: Female
  Weight: 58 kg

DRUGS (4)
  1. COUMADIN [Concomitant]
  2. ADVAIR HFA [Concomitant]
  3. FERAHEME [Suspect]
     Indication: BLADDER TRANSITIONAL CELL CARCINOMA
     Dosage: 3 ML, (120 MG) SINGLE
     Dates: start: 20110712, end: 20110712
  4. SYNTHROID [Concomitant]

REACTIONS (6)
  - UNRESPONSIVE TO STIMULI [None]
  - INTERNATIONAL NORMALISED RATIO DECREASED [None]
  - CARDIO-RESPIRATORY ARREST [None]
  - DEEP VEIN THROMBOSIS [None]
  - ANAPHYLACTIC REACTION [None]
  - FATIGUE [None]
